FAERS Safety Report 24380725 (Version 3)
Quarter: 2025Q1

REPORT INFORMATION
  Report Type: Other
  Country: US (occurrence: US)
  Receive Date: 20240930
  Receipt Date: 20250217
  Transmission Date: 20250409
  Serious: No
  Sender: TRAVERE THERAPEUTICS
  Company Number: US-TRAVERE-2024TVT00935

PATIENT
  Age: 45 Year
  Sex: Female

DRUGS (2)
  1. FILSPARI [Suspect]
     Active Substance: SPARSENTAN
     Indication: IgA nephropathy
     Route: 048
     Dates: start: 20240904
  2. FILSPARI [Suspect]
     Active Substance: SPARSENTAN
     Route: 048
     Dates: start: 202408

REACTIONS (7)
  - Insomnia [Recovered/Resolved]
  - Pruritus [Unknown]
  - Rash [Unknown]
  - Urine odour abnormal [Unknown]
  - Back pain [None]
  - Product distribution issue [Unknown]
  - Adverse event [None]

NARRATIVE: CASE EVENT DATE: 20240904
